FAERS Safety Report 7457223-7 (Version None)
Quarter: 2011Q2

REPORT INFORMATION
  Report Type: 
  Country: None (occurrence: None)
  Receive Date: 20110504
  Receipt Date: 20110502
  Transmission Date: 20111010
  Serious: No
  Sender: FDA-Public Use
  Company Number: US-PFIZER INC-2011094652

PATIENT
  Sex: Male

DRUGS (1)
  1. GEODON [Suspect]
     Dosage: UNK

REACTIONS (5)
  - SPEECH DISORDER [None]
  - WEIGHT DECREASED [None]
  - DRY MOUTH [None]
  - TREMOR [None]
  - TOOTH DISORDER [None]
